FAERS Safety Report 5045144-9 (Version None)
Quarter: 2006Q3

REPORT INFORMATION
  Report Type: 
  Country: None (occurrence: None)
  Receive Date: 20060705
  Receipt Date: 20060622
  Transmission Date: 20061208
  Serious: Yes (Hospitalization)
  Sender: FDA-Public Use
  Company Number: 2006BI005657

PATIENT
  Sex: Female

DRUGS (1)
  1. AVONEX [Suspect]
     Indication: MULTIPLE SCLEROSIS
     Dosage: 30 UG;QW;IM
     Route: 030
     Dates: start: 19990801, end: 20000201

REACTIONS (4)
  - BREAST CANCER FEMALE [None]
  - FIBROMYALGIA [None]
  - ORAL PAIN [None]
  - PAIN IN EXTREMITY [None]
